FAERS Safety Report 17686213 (Version 1)
Quarter: 2020Q2

REPORT INFORMATION
  Report Type: Spontaneous
  Country: FR (occurrence: FR)
  Receive Date: 20200420
  Receipt Date: 20200420
  Transmission Date: 20200714
  Serious: Yes (Hospitalization)
  Sender: FDA-Public Use
  Company Number: FR-PURDUE-GBR-2020-0076277

PATIENT
  Age: 96 Year
  Sex: Female
  Weight: 55 kg

DRUGS (1)
  1. OXYNORMORO [Suspect]
     Active Substance: OXYCODONE HYDROCHLORIDE
     Indication: PAIN
     Dosage: 5 MG, DAILY [STRENGTH 5 MG]
     Route: 048
     Dates: start: 20200101, end: 20200118

REACTIONS (2)
  - Cholestasis [Recovering/Resolving]
  - Hepatocellular injury [Recovered/Resolved]

NARRATIVE: CASE EVENT DATE: 20200102
